FAERS Safety Report 6245845-0 (Version None)
Quarter: 2009Q2

REPORT INFORMATION
  Report Type: 
  Country: None (occurrence: None)
  Receive Date: 20090626
  Receipt Date: 20080605
  Transmission Date: 20091009
  Serious: Yes (Other)
  Sender: FDA-Public Use
  Company Number: US-ASTRAZENECA-2008UW11507

PATIENT
  Age: 54 Year
  Sex: Male
  Weight: 100 kg

DRUGS (13)
  1. SEROQUEL [Suspect]
     Indication: BIPOLAR DISORDER
     Route: 048
     Dates: start: 20010101, end: 20040101
  2. SEROQUEL [Suspect]
     Indication: DEPRESSION
     Route: 048
     Dates: start: 20010101, end: 20040101
  3. SEROQUEL [Suspect]
     Dosage: 25 MG - 300 MG
     Route: 048
     Dates: start: 20020124
  4. SEROQUEL [Suspect]
     Dosage: 25 MG - 300 MG
     Route: 048
     Dates: start: 20020124
  5. TRAZODONE HCL [Concomitant]
     Route: 048
  6. WELLBUTRIN SR [Concomitant]
  7. DEPAKOTE [Concomitant]
     Route: 048
     Dates: end: 20050630
  8. ATENOLOL [Concomitant]
     Route: 048
  9. HYDROCHLOROTHIAZIDE [Concomitant]
  10. KLONOPIN [Concomitant]
  11. PREVACID [Concomitant]
  12. SKELAXINE [Concomitant]
  13. AMBIEN [Concomitant]
     Dates: end: 20050630

REACTIONS (7)
  - DIABETES MELLITUS [None]
  - DIABETIC COMA [None]
  - NEUROPATHY PERIPHERAL [None]
  - PANCREATITIS [None]
  - SHOCK [None]
  - TYPE 1 DIABETES MELLITUS [None]
  - TYPE 2 DIABETES MELLITUS [None]
